FAERS Safety Report 10227901 (Version 1)
Quarter: 2014Q2

REPORT INFORMATION
  Report Type: Spontaneous
  Country: US (occurrence: None)
  Receive Date: 20140609
  Receipt Date: 20140609
  Transmission Date: 20141212
  Serious: Yes (Death)
  Sender: FDA-Public Use
  Company Number: None

PATIENT
  Age: 20 Year
  Sex: Female
  Weight: 70.76 kg

DRUGS (1)
  1. GENERESS FE [Suspect]
     Indication: MENSTRUATION IRREGULAR
     Dosage: 1 PILL ONCE DAILY TAKEN BY MOUTH
     Route: 048
     Dates: start: 20130412, end: 20130512

REACTIONS (1)
  - Circulatory collapse [None]
